FAERS Safety Report 13610907 (Version 1)
Quarter: 2017Q2

REPORT INFORMATION
  Report Type: Spontaneous
  Country: US (occurrence: US)
  Receive Date: 20170604
  Receipt Date: 20170604
  Transmission Date: 20170830
  Serious: Yes (Hospitalization)
  Sender: FDA-Public Use
  Company Number: None

PATIENT
  Age: 43 Year
  Sex: Female
  Weight: 79.3 kg

DRUGS (1)
  1. IPILIMUMAB (BMS-734016; MDX-010 TRANSFERTOMADERIVED) [Suspect]
     Active Substance: IPILIMUMAB
     Dates: end: 20170523

REACTIONS (4)
  - Hyponatraemia [None]
  - Seizure [None]
  - Gait disturbance [None]
  - Slow speech [None]

NARRATIVE: CASE EVENT DATE: 20170529
